FAERS Safety Report 9529015 (Version 2)
Quarter: 2013Q3

REPORT INFORMATION
  Report Type: Spontaneous
  Country: US (occurrence: US)
  Receive Date: 20130917
  Receipt Date: 20130917
  Transmission Date: 20140515
  Serious: No
  Sender: FDA-Public Use
  Company Number: US-PFIZER INC-2013174315

PATIENT
  Age: 9 Year
  Sex: Female
  Weight: 59.86 kg

DRUGS (3)
  1. GENOTROPIN [Suspect]
     Indication: HYPOPITUITARISM
     Dosage: 2.2 MG, 1X/DAY
     Dates: start: 2005
  2. GENOTROPIN [Suspect]
     Indication: HYPOPITUITARISM
     Dosage: 0.34 MG/KG, WEEKLY
     Route: 058
     Dates: start: 200601
  3. GENOTROPIN [Suspect]
     Indication: PITUITARY HYPOPLASIA
     Dosage: 2.2 MG, 1X/DAY
     Route: 058
     Dates: start: 20130227

REACTIONS (4)
  - Product quality issue [Unknown]
  - Incorrect dose administered [Unknown]
  - Obesity [Unknown]
  - Developmental delay [Unknown]
